FAERS Safety Report 4771069-X (Version None)
Quarter: 2005Q3

REPORT INFORMATION
  Report Type: 
  Country: None (occurrence: None)
  Receive Date: 20050915
  Receipt Date: 20050912
  Transmission Date: 20060218
  Serious: Yes (Other)
  Sender: FDA-Public Use
  Company Number: PHNU2005DE03158

PATIENT
  Sex: Female

DRUGS (1)
  1. ZOMETA [Suspect]
     Indication: BREAST CANCER
     Dosage: 4 MG, QMO

REACTIONS (5)
  - ASEPTIC NECROSIS BONE [None]
  - DENTAL OPERATION [None]
  - DENTAL TREATMENT [None]
  - OSTEONECROSIS [None]
  - PLASTIC SURGERY [None]
